FAERS Safety Report 4752095-3 (Version None)
Quarter: 2005Q3

REPORT INFORMATION
  Report Type: 
  Country: None (occurrence: None)
  Receive Date: 20050825
  Receipt Date: 20050624
  Transmission Date: 20060218
  Serious: Yes (Death)
  Sender: FDA-Public Use
  Company Number: NZ-BOEHRINGER INGELHEIM PHARMACEUTICALS, INC.-2005-BP-10748AU

PATIENT
  Sex: Male
  Weight: 45 kg

DRUGS (5)
  1. SPIRIVA [Suspect]
     Indication: CHRONIC OBSTRUCTIVE PULMONARY DISEASE
     Route: 055
     Dates: start: 20050310, end: 20050523
  2. VENTOLIN INHALER (SALBUTAMOL) [Concomitant]
     Route: 055
     Dates: end: 20050523
  3. SYMBICORT TURBUHALER (BUDESONIDE + EFORMOTEROL) [Concomitant]
     Dosage: 800/24 MCG/MCG
     Route: 055
     Dates: end: 20050523
  4. NUELIN SR (THEOPHYLINE) [Concomitant]
     Route: 048
     Dates: end: 20050523
  5. DIPROSALIC OINTMENT (BETAMETHASONE + SALICYLIC ACID) [Concomitant]
     Route: 061

REACTIONS (2)
  - CARDIAC FAILURE [None]
  - CORONARY ARTERY DISEASE [None]
